FAERS Safety Report 21898775 (Version 1)
Quarter: 2023Q1

REPORT INFORMATION
  Report Type: Spontaneous
  Country: IN (occurrence: IN)
  Receive Date: 20230123
  Receipt Date: 20230123
  Transmission Date: 20230417
  Serious: Yes (Death)
  Sender: FDA-Public Use
  Company Number: IN-GE HEALTHCARE-2023CSU000357

PATIENT
  Age: 63 Year
  Sex: Female
  Weight: 50 kg

DRUGS (2)
  1. OMNIPAQUE [Suspect]
     Active Substance: IOHEXOL
     Indication: Positron emission tomogram
     Dosage: 50 ML, SINGLE
     Route: 042
     Dates: start: 20230113, end: 20230113
  2. OMNIPAQUE [Suspect]
     Active Substance: IOHEXOL
     Indication: Neoplasm malignant

REACTIONS (3)
  - Dyspnoea [Fatal]
  - Cough [Fatal]
  - Discomfort [Fatal]

NARRATIVE: CASE EVENT DATE: 20230113
